FAERS Safety Report 17586787 (Version 1)
Quarter: 2020Q1

REPORT INFORMATION
  Report Type: Spontaneous
  Country: US (occurrence: US)
  Receive Date: 20200326
  Receipt Date: 20200326
  Transmission Date: 20200409
  Serious: Yes (Other)
  Sender: FDA-Public Use
  Company Number: US-COVIS PHARMA B.V.-2020COV00113

PATIENT
  Sex: Female

DRUGS (2)
  1. ALVESCO [Suspect]
     Active Substance: CICLESONIDE
     Dosage: MULTIPLE SPRAYS TO TRY AND GET ONE FULL DOSE
  2. ALVESCO [Suspect]
     Active Substance: CICLESONIDE
     Dosage: 2 INHALATIONS, 2X/DAY

REACTIONS (4)
  - Dyspnoea [Not Recovered/Not Resolved]
  - Underdose [Not Recovered/Not Resolved]
  - Dysgeusia [Not Recovered/Not Resolved]
  - Device issue [Not Recovered/Not Resolved]

NARRATIVE: CASE EVENT DATE: 2020
